FAERS Safety Report 15104190 (Version 3)
Quarter: 2019Q2

REPORT INFORMATION
  Report Type: Report from Study
  Country: US (occurrence: US)
  Receive Date: 20180703
  Receipt Date: 20190403
  Transmission Date: 20190711
  Serious: Yes (Other)
  Sender: FDA-Public Use
  Company Number: US-ALEXION PHARMACEUTICALS INC.-A201808117

PATIENT
  Sex: Female

DRUGS (2)
  1. PENICILLIN                         /00000901/ [Suspect]
     Active Substance: PENICILLIN G
     Indication: PROPHYLAXIS
     Route: 065
  2. SOLIRIS [Suspect]
     Active Substance: ECULIZUMAB
     Indication: PRODUCT USED FOR UNKNOWN INDICATION
     Route: 065

REACTIONS (12)
  - Activated partial thromboplastin time prolonged [Unknown]
  - Post procedural swelling [Unknown]
  - Basal cell carcinoma [Unknown]
  - Arthritis [Recovering/Resolving]
  - Vomiting [Unknown]
  - Anaemia [Unknown]
  - Nausea [Unknown]
  - Deafness [Recovering/Resolving]
  - Balance disorder [Not Recovered/Not Resolved]
  - Asthenia [Unknown]
  - Fatigue [Recovered/Resolved]
  - Memory impairment [Unknown]
